FAERS Safety Report 6415087-4 (Version None)
Quarter: 2009Q4

REPORT INFORMATION
  Report Type: 
  Country: None (occurrence: None)
  Receive Date: 20091022
  Receipt Date: 20091013
  Transmission Date: 20100525
  Serious: Yes (Life-Threatening, Hospitalization, Disabling)
  Sender: FDA-Public Use
  Company Number: ADR43032009

PATIENT
  Age: 42 Year
  Sex: Male

DRUGS (6)
  1. CITALOPRAM HYDROBROMIDE [Suspect]
     Indication: DEPRESSION
     Dosage: ORAL
     Route: 048
     Dates: start: 20080901
  2. CLOZARIL [Concomitant]
  3. DIAZEPAM [Concomitant]
  4. HYOSCINE [Concomitant]
  5. OLANZAPINE [Concomitant]
  6. TRAMADOL HCL [Concomitant]

REACTIONS (1)
  - TYPE 2 DIABETES MELLITUS [None]
